FAERS Safety Report 7368474-4 (Version None)
Quarter: 2011Q1

REPORT INFORMATION
  Report Type: 
  Country: None (occurrence: None)
  Receive Date: 20110309
  Receipt Date: 20110221
  Transmission Date: 20110831
  Serious: Yes (Hospitalization)
  Sender: FDA-Public Use
  Company Number: DSA_45056_2011

PATIENT
  Age: 90 Year
  Sex: Male

DRUGS (3)
  1. ASPENON (ASPENON - APRINDINE HYDROCHLORIDE) (NOT SPECIFIED) [Suspect]
     Indication: ATRIAL FIBRILLATION
     Dosage: (60 DF QD ORAL)
     Route: 048
  2. CARVEDILOL [Suspect]
     Indication: ATRIAL FIBRILLATION
     Dosage: (10 MG QD ORAL)
     Route: 048
  3. DILTIAZEM HYDROCHLORIDE [Suspect]
     Indication: ANGINA PECTORIS
     Dosage: (200 MG QD ORAL)
     Route: 048
     Dates: start: 20101006

REACTIONS (2)
  - BRADYCARDIA [None]
  - SINUS ARREST [None]
